FAERS Safety Report 8178095-1 (Version None)
Quarter: 2012Q1

REPORT INFORMATION
  Report Type: 
  Country: None (occurrence: None)
  Receive Date: 20120127
  Receipt Date: 20111012
  Transmission Date: 20120608
  Serious: Yes (Other)
  Sender: FDA-Public Use
  Company Number: AMAG201100212

PATIENT
  Age: 66 Year
  Sex: Male
  Weight: 109.3 kg

DRUGS (5)
  1. HUMALOG (INSULIN LISPRO), 75/25 [Concomitant]
  2. LISINOPRIL (LISINOPRIL DIHYDRATE) [Concomitant]
  3. FERAHEME [Suspect]
     Indication: IRON DEFICIENCY ANAEMIA
     Dosage: 510 MG, SINGLE, INTRAVENOUS
     Route: 042
     Dates: start: 20111011, end: 20111011
  4. ASPIRIN [Concomitant]
  5. ALLOPURINOL [Concomitant]

REACTIONS (2)
  - URTICARIA [None]
  - HYPOTENSION [None]
